FAERS Safety Report 7484838-2 (Version None)
Quarter: 2011Q2

REPORT INFORMATION
  Report Type: 
  Country: None (occurrence: None)
  Receive Date: 20110517
  Receipt Date: 20100122
  Transmission Date: 20111010
  Serious: Yes (Hospitalization, Disabling, Other)
  Sender: FDA-Public Use
  Company Number: US-BAYER-201012253NA

PATIENT
  Age: 28 Year
  Sex: Female
  Weight: 89.342 kg

DRUGS (5)
  1. ALLEGRA [Concomitant]
     Indication: MULTIPLE ALLERGIES
     Dosage: UNK
     Dates: start: 20040101, end: 20050101
  2. CEPHALEXIN [Concomitant]
     Dosage: UNK
  3. PROPOXYPHENF NA [Concomitant]
  4. YAZ [Suspect]
     Dosage: UNK
     Dates: start: 20030601, end: 20050301
  5. YASMIN [Suspect]
     Indication: CONTRACEPTION
     Dates: start: 20030601, end: 20050301

REACTIONS (12)
  - VERTIGO [None]
  - GAIT DISTURBANCE [None]
  - THROMBOSIS [None]
  - HEMIPLEGIA [None]
  - CEREBROVASCULAR ACCIDENT [None]
  - CRANIAL NERVE DISORDER [None]
  - DYSPHAGIA [None]
  - QUALITY OF LIFE DECREASED [None]
  - PAIN [None]
  - HEMIPARESIS [None]
  - COGNITIVE DISORDER [None]
  - ANXIETY [None]
